FAERS Safety Report 6933705-9 (Version None)
Quarter: 2010Q3

REPORT INFORMATION
  Report Type: 
  Country: None (occurrence: None)
  Receive Date: 20100820
  Receipt Date: 20100809
  Transmission Date: 20110219
  Serious: Yes (Other)
  Sender: FDA-Public Use
  Company Number: JP-PAR PHARMACEUTICAL, INC-2010SCPR001958

PATIENT

DRUGS (5)
  1. PERGOLIDE MESYLATE [Suspect]
     Indication: PARKINSON'S DISEASE
     Dosage: 250 A?G/ D, UNKNOWN
     Route: 065
     Dates: end: 20090101
  2. LEVODOPA [Concomitant]
     Indication: PARKINSON'S DISEASE
     Dosage: 200 MG/D
     Route: 065
  3. LEVODOPA [Concomitant]
     Dosage: 500 MG/DL, UNKNOWN
     Route: 065
  4. TRIHEXYPHENIDYL HCL [Concomitant]
     Indication: PARKINSON'S DISEASE
     Dosage: 6 MG/D
     Route: 065
  5. BROMOCRIPTINE [Concomitant]
     Indication: PARKINSON'S DISEASE
     Dosage: 7.5 MG/D
     Route: 065

REACTIONS (2)
  - HALLUCINATION, VISUAL [None]
  - OBSESSIVE-COMPULSIVE DISORDER [None]
